FAERS Safety Report 10689142 (Version 1)
Quarter: 2015Q1

REPORT INFORMATION
  Report Type: Spontaneous
  Country: CA (occurrence: CA)
  Receive Date: 20150105
  Receipt Date: 20150105
  Transmission Date: 20150720
  Serious: Yes (Other)
  Sender: FDA-Public Use
  Company Number: CA-ROCHE-1516507

PATIENT
  Sex: Male
  Weight: 123.49 kg

DRUGS (8)
  1. DESIPRAMINE [Concomitant]
     Active Substance: DESIPRAMINE
  2. HYDROMORPHONE [Concomitant]
     Active Substance: HYDROMORPHONE
  3. HYDROMORPH CONTIN [Concomitant]
     Active Substance: HYDROMORPHONE
  4. PAXIL (CANADA) [Concomitant]
  5. PARIET [Concomitant]
     Active Substance: RABEPRAZOLE SODIUM
  6. WELLBUTRIN [Concomitant]
     Active Substance: BUPROPION HYDROCHLORIDE
  7. ATENOL [Concomitant]
     Active Substance: ATENOLOL
  8. RITUXAN [Suspect]
     Active Substance: RITUXIMAB
     Indication: PRODUCT USED FOR UNKNOWN INDICATION
     Route: 065
     Dates: start: 2005

REACTIONS (5)
  - Type 2 diabetes mellitus [Not Recovered/Not Resolved]
  - Heart rate increased [Not Recovered/Not Resolved]
  - Fatigue [Not Recovered/Not Resolved]
  - Thrombosis [Not Recovered/Not Resolved]
  - Fluid retention [Not Recovered/Not Resolved]

NARRATIVE: CASE EVENT DATE: 2006
